FAERS Safety Report 16925105 (Version 1)
Quarter: 2019Q4

REPORT INFORMATION
  Report Type: Spontaneous
  Country: NL (occurrence: NL)
  Receive Date: 20191016
  Receipt Date: 20191016
  Transmission Date: 20200122
  Serious: Yes (Life-Threatening, Hospitalization, Other)
  Sender: FDA-Public Use
  Company Number: NL-EPIC PHARMA LLC-2019EPC00284

PATIENT
  Age: 71 Year
  Sex: Male

DRUGS (6)
  1. PROPOFOL. [Concomitant]
     Active Substance: PROPOFOL
  2. ROCURONIUM [Concomitant]
     Active Substance: ROCURONIUM BROMIDE
  3. SUFENTANIL [Concomitant]
     Active Substance: SUFENTANIL
  4. SEVOFLURANE. [Concomitant]
     Active Substance: SEVOFLURANE
  5. MORPHINE SULFATE. [Suspect]
     Active Substance: MORPHINE SULFATE
     Indication: HERNIA REPAIR
     Dosage: 38 MG TOTALLY ADMINISTERED INTRATHECALLY
     Route: 037
  6. LIDOCAINE. [Concomitant]
     Active Substance: LIDOCAINE
     Dosage: 60 MG
     Route: 037

REACTIONS (7)
  - Product dispensing error [Recovered/Resolved]
  - Metabolic acidosis [Recovered/Resolved]
  - Respiratory acidosis [Recovered/Resolved]
  - Wrong product administered [Recovered/Resolved]
  - Coma [Recovered/Resolved]
  - Toxicity to various agents [Recovered/Resolved]
  - Respiratory depression [Recovered/Resolved]
